FAERS Safety Report 25664704 (Version 1)
Quarter: 2025Q3

REPORT INFORMATION
  Report Type: Spontaneous
  Country: US (occurrence: US)
  Receive Date: 20250811
  Receipt Date: 20250811
  Transmission Date: 20251021
  Serious: Yes (Other)
  Sender: INCYTE
  Company Number: US-INCYTE CORPORATION-2025IN008745

PATIENT

DRUGS (2)
  1. JAKAFI [Suspect]
     Active Substance: RUXOLITINIB
     Indication: Graft versus host disease
     Dosage: 10 MILLIGRAM, QOD
  2. JAKAFI [Suspect]
     Active Substance: RUXOLITINIB

REACTIONS (2)
  - Graft versus host disease [Unknown]
  - Condition aggravated [Unknown]
